FAERS Safety Report 10077081 (Version 2)
Quarter: 2014Q2

REPORT INFORMATION
  Report Type: Spontaneous
  Country: GB (occurrence: GB)
  Receive Date: 20140414
  Receipt Date: 20140414
  Transmission Date: 20141212
  Serious: Yes (Hospitalization)
  Sender: FDA-Public Use
  Company Number: PHFR2014GB001801

PATIENT
  Age: 41 Year
  Sex: Male

DRUGS (4)
  1. CLOZARIL [Suspect]
     Indication: SCHIZOPHRENIA
     Dosage: UNK
     Route: 048
     Dates: start: 20140217
  2. SIMVASTATINE [Concomitant]
     Indication: BLOOD CHOLESTEROL INCREASED
     Dosage: 40 MG, DAILY
     Route: 048
  3. THIAMINE [Concomitant]
     Dosage: 200 MG, DAILY
     Route: 048
  4. CLONAZEPAM [Concomitant]
     Indication: AGITATION
     Dosage: 4 MG, DAILY
     Route: 048

REACTIONS (2)
  - Nasopharyngitis [Recovered/Resolved]
  - Non-cardiac chest pain [Recovered/Resolved]
